FAERS Safety Report 6184196-X (Version None)
Quarter: 2009Q2

REPORT INFORMATION
  Report Type: 
  Country: None (occurrence: None)
  Receive Date: 20090508
  Receipt Date: 20090428
  Transmission Date: 20091009
  Serious: Yes (Death, Hospitalization)
  Sender: FDA-Public Use
  Company Number: ZA-PFIZER INC-2009206855

PATIENT

DRUGS (1)
  1. ZITHROMAX [Suspect]
     Indication: BRONCHOPNEUMONIA
     Dosage: UNIT DOSE: UNK; FREQUENCY: UNK, UNK;
     Dates: start: 20090301

REACTIONS (1)
  - HEPATITIS FULMINANT [None]
